FAERS Safety Report 9426843 (Version 1)
Quarter: 2013Q3

REPORT INFORMATION
  Report Type: Spontaneous
  Country: US (occurrence: US)
  Receive Date: 20130730
  Receipt Date: 20130730
  Transmission Date: 20140515
  Serious: No
  Sender: FDA-Public Use
  Company Number: US-SANOFI-AVENTIS-2013SA009086

PATIENT
  Age: 31 Year
  Sex: Female

DRUGS (2)
  1. ZOLPIDEM TARTRATE EXTENDED RELEASE - WINTHROP [Suspect]
     Indication: SLEEP DISORDER
     Route: 048
     Dates: start: 20130130
  2. ZOLPIDEM TARTRATE EXTENDED RELEASE - WINTHROP [Suspect]
     Indication: SLEEP DISORDER
     Route: 048
     Dates: start: 2010

REACTIONS (1)
  - Abnormal behaviour [Not Recovered/Not Resolved]
